FAERS Safety Report 24726401 (Version 1)
Quarter: 2024Q4

REPORT INFORMATION
  Report Type: Spontaneous
  Country: US (occurrence: US)
  Receive Date: 20241212
  Receipt Date: 20241212
  Transmission Date: 20250115
  Serious: No
  Sender: MYLAN
  Company Number: US-MYLANLABS-2024M1109270

PATIENT
  Sex: Female
  Weight: 47.63 kg

DRUGS (1)
  1. XULANE [Suspect]
     Active Substance: ETHINYL ESTRADIOL\NORELGESTROMIN
     Indication: Dysmenorrhoea
     Dosage: 150/35 MICROGRAM, QD (ONCE A WEEK, AND A WEEK OFF)
     Route: 062
     Dates: start: 202407, end: 20241126

REACTIONS (2)
  - Psoriasis [Not Recovered/Not Resolved]
  - Off label use [Unknown]
